FAERS Safety Report 8071015-X (Version None)
Quarter: 2012Q1

REPORT INFORMATION
  Report Type: 
  Country: None (occurrence: None)
  Receive Date: 20120125
  Receipt Date: 20111222
  Transmission Date: 20120608
  Serious: Yes (Other)
  Sender: FDA-Public Use
  Company Number: PL-ROCHE-1020631

PATIENT
  Sex: Female

DRUGS (2)
  1. BONIVA [Suspect]
     Indication: PRODUCT USED FOR UNKNOWN INDICATION
     Dosage: LAST ADMINISTRATION (5TH): 17/JAN/2011
     Route: 042
     Dates: start: 20090501, end: 20110301
  2. CORDARONE [Suspect]
     Indication: ATRIAL FIBRILLATION

REACTIONS (4)
  - CORONARY ARTERY BYPASS [None]
  - HYPERTHYROIDISM [None]
  - ATRIAL FIBRILLATION [None]
  - MYOCARDIAL INFARCTION [None]
